FAERS Safety Report 9908774 (Version 1)
Quarter: 2014Q1

REPORT INFORMATION
  Report Type: Spontaneous
  Country: AT (occurrence: None)
  Receive Date: 20140212
  Receipt Date: 20140212
  Transmission Date: 20141002
  Serious: Yes (Death, Hospitalization, Other)
  Sender: FDA-Public Use
  Company Number: FK201400356

PATIENT
  Age: 81 Year
  Sex: Male

DRUGS (2)
  1. GRANISETRON [Suspect]
     Indication: ANTIEMETIC SUPPORTIVE CARE
     Dosage: UNKNOWN, 2 MG/DAY, UNKNOWN
  2. 5-AZACYTIDINE [Suspect]
     Indication: MYELODYSPLASTIC SYNDROME
     Route: 058

REACTIONS (8)
  - Colitis ischaemic [None]
  - Gangrene [None]
  - Post procedural sepsis [None]
  - Renal failure [None]
  - Large intestine perforation [None]
  - Peritonitis [None]
  - General physical health deterioration [None]
  - Dialysis [None]
